FAERS Safety Report 8613545-5 (Version None)
Quarter: 2012Q3

REPORT INFORMATION
  Report Type: 
  Country: None (occurrence: None)
  Receive Date: 20120823
  Receipt Date: 20120808
  Transmission Date: 20120928
  Serious: Yes (Hospitalization)
  Sender: FDA-Public Use
  Company Number: JP-MERCK-1207JPN011120

PATIENT

DRUGS (36)
  1. RIBAVIRIN [Suspect]
     Dosage: 4 DF, QD
     Route: 048
     Dates: start: 20120111, end: 20120404
  2. PEGINTERFERON ALFA-2B [Suspect]
     Dosage: 4 UNK, UNK
     Route: 048
     Dates: start: 20120406, end: 20120620
  3. RIBAVIRIN [Suspect]
     Indication: HEPATITIS C
     Dosage: 2 DF, QD
     Route: 048
     Dates: start: 20120110, end: 20120110
  4. BLINDED VANIPREVIR [Suspect]
     Indication: HEPATITIS C
     Dosage: 2 DF, QD
     Route: 048
     Dates: start: 20120110, end: 20120110
  5. RIBAVIRIN [Suspect]
     Dosage: 2 DF, UNK
     Route: 048
     Dates: start: 20120405, end: 20120405
  6. SIMVASTATIN [Suspect]
     Indication: HEPATITIS C
     Dosage: 2 DF, QD
     Route: 048
     Dates: start: 20120110, end: 20120110
  7. PLACEBO [Suspect]
     Dosage: 4 DF, QD
     Route: 048
     Dates: start: 20120111, end: 20120404
  8. PLACEBO [Suspect]
     Dosage: 4 UNK, UNK
     Route: 048
     Dates: start: 20120406, end: 20120620
  9. BLINDED VANIPREVIR [Suspect]
     Dosage: 4 UNK, UNK
     Route: 048
     Dates: start: 20120406, end: 20120620
  10. LOXOPROFEN [Concomitant]
     Indication: PYREXIA
  11. REBETOL [Suspect]
     Dosage: 3 DF, QD
     Route: 048
     Dates: start: 20120531, end: 20120719
  12. SIMVASTATIN [Suspect]
     Dosage: 4 DF, QD
     Route: 048
     Dates: start: 20120111, end: 20120404
  13. BLINDED VANIPREVIR [Suspect]
     Dosage: 2 DF, UNK
     Route: 048
     Dates: start: 20120405, end: 20120405
  14. SIMVASTATIN [Suspect]
     Dosage: 4 UNK, UNK
     Route: 048
     Dates: start: 20120406, end: 20120620
  15. REBAMIPIDE [Concomitant]
     Indication: GASTRITIS PROPHYLAXIS
     Dosage: UNK, PRN
     Route: 048
     Dates: start: 20120223
  16. REBETOL [Suspect]
     Dosage: 2 DF, UNK
     Route: 048
     Dates: start: 20120405, end: 20120405
  17. REBETOL [Suspect]
     Dosage: 3 DF, UNK
     Route: 048
     Dates: start: 20120406, end: 20120516
  18. PEGINTERFERON ALFA-2B [Suspect]
     Dosage: 4 DF, QD
     Route: 048
     Dates: start: 20120111, end: 20120404
  19. SIMVASTATIN [Suspect]
     Dosage: 4 DF, QD
     Route: 048
     Dates: start: 20120111, end: 20120404
  20. BLINDED VANIPREVIR [Suspect]
     Dosage: 4 DF, QD
     Route: 048
     Dates: start: 20120111, end: 20120404
  21. RIBAVIRIN [Suspect]
     Dosage: 4 UNK, UNK
     Route: 048
     Dates: start: 20120406, end: 20120620
  22. PEG-INTRON [Suspect]
     Dosage: 80 UNK, UNK
     Route: 058
     Dates: start: 20120510, end: 20120719
  23. REBETOL [Suspect]
     Indication: HEPATITIS C
     Dosage: 3 DF, QD
     Route: 048
     Dates: start: 20120110, end: 20120404
  24. REBETOL [Suspect]
     Dosage: 1 DF, QD
     Route: 048
     Dates: start: 20120719, end: 20120719
  25. PEGINTERFERON ALFA-2B [Suspect]
     Dosage: 2 DF, UNK
     Route: 048
     Dates: start: 20120405, end: 20120405
  26. PLACEBO [Suspect]
     Dosage: 2 DF, UNK
     Route: 048
     Dates: start: 20120405, end: 20120405
  27. SIMVASTATIN [Suspect]
     Dosage: 2 DF, UNK
     Route: 048
     Dates: start: 20120405, end: 20120405
  28. SIMVASTATIN [Suspect]
     Dosage: 2 DF, UNK
     Route: 048
     Dates: start: 20120405, end: 20120405
  29. PEG-INTRON [Suspect]
     Indication: HEPATITIS C
     Dosage: 80 MICROGRAM, QW
     Route: 058
     Dates: start: 20120110, end: 20120117
  30. PEG-INTRON [Suspect]
     Dosage: 80 MICROGRAM, QW
     Route: 058
     Dates: start: 20120126, end: 20120502
  31. PEGINTERFERON ALFA-2B [Suspect]
     Indication: HEPATITIS C
     Dosage: 2 DF, QD
     Route: 048
     Dates: start: 20120110, end: 20120110
  32. PLACEBO [Suspect]
     Indication: HEPATITIS C
     Dosage: 2 DF, QD
     Route: 048
     Dates: start: 20120110, end: 20120110
  33. SIMVASTATIN [Suspect]
     Indication: HEPATITIS C
     Dosage: 2 DF, QD
     Route: 048
     Dates: start: 20120110, end: 20120110
  34. SIMVASTATIN [Suspect]
     Dosage: 4 UNK, UNK
     Route: 048
     Dates: start: 20120406, end: 20120620
  35. REBETOL [Suspect]
     Dosage: 2 DF, UNK
     Route: 048
     Dates: start: 20120517, end: 20120530
  36. LOXOPROFEN [Concomitant]
     Indication: STOMATITIS
     Dosage: UNK, PRN
     Route: 048
     Dates: start: 20120110

REACTIONS (1)
  - SUDDEN HEARING LOSS [None]
